FAERS Safety Report 12681102 (Version 1)
Quarter: 2016Q3

REPORT INFORMATION
  Report Type: Spontaneous
  Country: FR (occurrence: FR)
  Receive Date: 20160824
  Receipt Date: 20160824
  Transmission Date: 20161109
  Serious: Yes (Life-Threatening)
  Sender: FDA-Public Use
  Company Number: FR-SA-2016SA153862

PATIENT
  Age: 28 Year
  Sex: Male

DRUGS (5)
  1. MITOXANTRONE [Suspect]
     Active Substance: MITOXANTRONE HYDROCHLORIDE
     Indication: LYMPHOCYTIC LEUKAEMIA
     Route: 042
     Dates: start: 20160504, end: 20160506
  2. EVOLTRA [Suspect]
     Active Substance: CLOFARABINE
     Indication: LYMPHOCYTIC LEUKAEMIA
     Dosage: 36 MILLIGRAMS DAY1 - DAY2 - DAY4
     Route: 042
     Dates: start: 20160503, end: 20160506
  3. ARACYTINE [Suspect]
     Active Substance: CYTARABINE
     Indication: LYMPHOCYTIC LEUKAEMIA
     Route: 042
     Dates: start: 20160506, end: 20160506
  4. METHOTREXATE. [Suspect]
     Active Substance: METHOTREXATE
     Indication: LYMPHOCYTIC LEUKAEMIA
     Route: 037
     Dates: start: 20160506, end: 20160506
  5. ETOPOPHOS [Suspect]
     Active Substance: ETOPOSIDE PHOSPHATE
     Indication: LYMPHOCYTIC LEUKAEMIA
     Route: 042
     Dates: start: 20160504, end: 20160506

REACTIONS (2)
  - Febrile bone marrow aplasia [Recovered/Resolved]
  - Septic shock [Recovered/Resolved]

NARRATIVE: CASE EVENT DATE: 20160509
